FAERS Safety Report 19043557 (Version 1)
Quarter: 2021Q1

REPORT INFORMATION
  Report Type: Spontaneous
  Country: US (occurrence: US)
  Receive Date: 20210322
  Receipt Date: 20210322
  Transmission Date: 20210420
  Serious: No
  Sender: FDA-Public Use
  Company Number: US-GALDERMA-US2020051684

PATIENT
  Sex: Female

DRUGS (2)
  1. DIFFERIN SOOTHING MOISTURIZER (COSMETICS) [Suspect]
     Active Substance: COSMETICS
     Indication: DRY SKIN
     Route: 061
  2. DIFFERIN GEL [Suspect]
     Active Substance: ADAPALENE
     Indication: DRY SKIN
     Dosage: 0.1%
     Route: 061

REACTIONS (1)
  - Product use in unapproved indication [Recovered/Resolved]
